FAERS Safety Report 6763857-5 (Version None)
Quarter: 2010Q2

REPORT INFORMATION
  Report Type: 
  Country: None (occurrence: None)
  Receive Date: 20100610
  Receipt Date: 20100607
  Transmission Date: 20101027
  Serious: Yes (Life-Threatening, Other)
  Sender: FDA-Public Use
  Company Number: GB-ROXANE LABORATORIES, INC.-2010-RO-00687RO

PATIENT
  Age: 67 Year
  Sex: Female

DRUGS (2)
  1. ONDANSETRON [Suspect]
     Indication: NAUSEA
     Dosage: 8 MG
  2. FLUOXETINE [Suspect]
     Indication: DEPRESSION
     Dosage: 60 MG

REACTIONS (4)
  - HYPOMAGNESAEMIA [None]
  - LONG QT SYNDROME [None]
  - STRESS CARDIOMYOPATHY [None]
  - TORSADE DE POINTES [None]
